FAERS Safety Report 12445814 (Version 1)
Quarter: 2016Q2

REPORT INFORMATION
  Report Type: Spontaneous
  Country: US (occurrence: US)
  Receive Date: 20160608
  Receipt Date: 20160608
  Transmission Date: 20160815
  Serious: No
  Sender: FDA-Public Use
  Company Number: US-JNJFOC-20160512240

PATIENT
  Age: 31 Year
  Sex: Male
  Weight: 70 kg

DRUGS (2)
  1. TYLENOL EXTRA STRENGTH [Suspect]
     Active Substance: ACETAMINOPHEN
     Indication: TOOTHACHE
     Dosage: 2 TABLETS, ONCE
     Route: 048
     Dates: start: 20160510, end: 20160511
  2. ADVIL [Suspect]
     Active Substance: IBUPROFEN
     Indication: PAIN
     Dosage: 2 TABLET, 10 IN TOTAL
     Route: 065

REACTIONS (2)
  - Palpitations [Not Recovered/Not Resolved]
  - Chest pain [Not Recovered/Not Resolved]
